FAERS Safety Report 6678406-X (Version None)
Quarter: 2010Q2

REPORT INFORMATION
  Report Type: 
  Country: None (occurrence: None)
  Receive Date: 20100413
  Receipt Date: 20100401
  Transmission Date: 20101027
  Serious: No
  Sender: FDA-Public Use
  Company Number: US-BIOGENIDEC-2010BI011420

PATIENT
  Age: 29 Year
  Sex: Female

DRUGS (3)
  1. TYSABRI [Suspect]
     Indication: MULTIPLE SCLEROSIS
     Route: 042
     Dates: start: 20090701
  2. VITAMIN D [Concomitant]
     Indication: VITAMIN D DECREASED
     Route: 048
     Dates: start: 20090701, end: 20100401
  3. IRON SUPPLEMENT [Concomitant]
     Indication: BLOOD IRON DECREASED
     Route: 048
     Dates: start: 20090701, end: 20100331

REACTIONS (4)
  - BLEPHAROSPASM [None]
  - BLOOD IRON DECREASED [None]
  - DRY EYE [None]
  - VITAMIN D DECREASED [None]
